FAERS Safety Report 9801728 (Version 1)
Quarter: 2014Q1

REPORT INFORMATION
  Report Type: Spontaneous
  Country: IT (occurrence: IT)
  Receive Date: 20140107
  Receipt Date: 20140107
  Transmission Date: 20141002
  Serious: Yes (Hospitalization)
  Sender: FDA-Public Use
  Company Number: IT-PFIZER INC-2014004250

PATIENT
  Age: 27 Year
  Sex: Male

DRUGS (6)
  1. ZOLOFT [Suspect]
     Indication: MENTAL DISORDER
     Dosage: UNK
     Route: 048
     Dates: start: 20131220, end: 20131220
  2. DEPAKIN [Suspect]
     Indication: MENTAL DISORDER
     Dosage: UNK
     Route: 048
     Dates: start: 20131220, end: 20131220
  3. STILNOX [Suspect]
     Indication: MENTAL DISORDER
     Dosage: UNK
     Dates: start: 20131220, end: 20131220
  4. LORAZEPAM DOROM [Suspect]
     Indication: MENTAL DISORDER
     Dosage: UNK
     Route: 048
     Dates: start: 20131220, end: 20131220
  5. LAMICTAL [Suspect]
     Indication: MENTAL DISORDER
     Dosage: UNK
     Route: 048
     Dates: start: 20131220, end: 20131220
  6. METHADONE HYDROCHLORIDE [Concomitant]
     Indication: DRUG DEPENDENCE
     Dosage: UNK
     Dates: start: 20131216, end: 20131218

REACTIONS (2)
  - Drug abuse [Unknown]
  - Sopor [Unknown]
